FAERS Safety Report 5144698-1 (Version None)
Quarter: 2006Q4

REPORT INFORMATION
  Report Type: 
  Country: None (occurrence: None)
  Receive Date: 20061031
  Receipt Date: 20061016
  Transmission Date: 20070319
  Serious: Yes (Hospitalization)
  Sender: FDA-Public Use
  Company Number: 2006PV023282

PATIENT
  Age: 71 Year
  Sex: Male
  Weight: 85.2762 kg

DRUGS (4)
  1. BYETTA [Suspect]
     Indication: DIABETES MELLITUS NON-INSULIN-DEPENDENT
     Dosage: 10 MCG BID SC ; 5 MCG BID SC
     Route: 058
     Dates: start: 20050101, end: 20060101
  2. BYETTA [Suspect]
     Indication: DIABETES MELLITUS NON-INSULIN-DEPENDENT
     Dosage: 10 MCG BID SC ; 5 MCG BID SC
     Route: 058
     Dates: start: 20060101
  3. ASMANEX TWISTHALER [Concomitant]
  4. MULTIPLE UNSPECIFIED [Concomitant]

REACTIONS (7)
  - BLOOD GLUCOSE INCREASED [None]
  - BRONCHITIS [None]
  - DECREASED APPETITE [None]
  - PNEUMONIA [None]
  - PULMONARY FIBROSIS [None]
  - RASH GENERALISED [None]
  - WEIGHT DECREASED [None]
